FAERS Safety Report 9122744 (Version 1)
Quarter: 2013Q1

REPORT INFORMATION
  Report Type: Spontaneous
  Country: US (occurrence: US)
  Receive Date: 20130227
  Receipt Date: 20130227
  Transmission Date: 20140127
  Serious: Yes (Other)
  Sender: FDA-Public Use
  Company Number: US-BANPHARM-20130837

PATIENT
  Age: 85 Year
  Sex: Female
  Weight: 54.43 kg

DRUGS (2)
  1. ALEVE LIQUID GELS 220MG [Suspect]
     Indication: PRODUCT USED FOR UNKNOWN INDICATION
     Dosage: 1 DF, ONCE,
     Route: 048
     Dates: start: 20130211, end: 20130211
  2. ACID REFLUX MEDICATION [Concomitant]

REACTIONS (2)
  - Choking [Recovered/Resolved]
  - Oropharyngeal pain [Recovered/Resolved]
